FAERS Safety Report 7544406-0 (Version None)
Quarter: 2011Q2

REPORT INFORMATION
  Report Type: 
  Country: None (occurrence: None)
  Receive Date: 20110613
  Receipt Date: 20080424
  Transmission Date: 20111010
  Serious: Yes (Death, Life-Threatening)
  Sender: FDA-Public Use
  Company Number: PHHY2008US05079

PATIENT
  Sex: Male

DRUGS (5)
  1. BUSPAR [Concomitant]
  2. COGENTIN [Concomitant]
  3. CLOZAPINE [Suspect]
     Indication: SCHIZOPHRENIA
     Dosage: 700MG/DAY
     Route: 048
     Dates: start: 20040101
  4. LITHIUM [Concomitant]
  5. EFFEXOR XR [Concomitant]

REACTIONS (1)
  - LARYNGEAL CANCER [None]
